FAERS Safety Report 15482553 (Version 1)
Quarter: 2018Q4

REPORT INFORMATION
  Report Type: Spontaneous
  Country: US (occurrence: US)
  Receive Date: 20181003
  Receipt Date: 20181003
  Transmission Date: 20190205
  Serious: Yes (Other)
  Sender: FDA-Public Use
  Company Number: None

PATIENT
  Age: 35 Year
  Sex: Female
  Weight: 89.1 kg

DRUGS (5)
  1. MAGNESIUM OXIDE. [Concomitant]
     Active Substance: MAGNESIUM OXIDE
  2. VITAMIN C [Concomitant]
     Active Substance: ASCORBIC ACID
  3. SERTRALINE [Suspect]
     Active Substance: SERTRALINE HYDROCHLORIDE
     Indication: ANXIETY
     Dosage: ?          QUANTITY:100 TABLET(S);?
     Route: 048
  4. PENICILLIN [Concomitant]
     Active Substance: PENICILLIN
  5. CLINDAMYCIN. [Concomitant]
     Active Substance: CLINDAMYCIN

REACTIONS (5)
  - Insomnia [None]
  - Hallucination [None]
  - Therapy cessation [None]
  - Weight increased [None]
  - Nightmare [None]

NARRATIVE: CASE EVENT DATE: 20180114
